FAERS Safety Report 9165854 (Version 1)
Quarter: 2013Q1

REPORT INFORMATION
  Report Type: Spontaneous
  Country: BR (occurrence: BR)
  Receive Date: 20130315
  Receipt Date: 20130315
  Transmission Date: 20140127
  Serious: Yes (Hospitalization)
  Sender: FDA-Public Use
  Company Number: BR-ASTRAZENECA-2013SE16277

PATIENT
  Age: 77 Year
  Sex: Male
  Weight: 78 kg

DRUGS (4)
  1. CRESTOR [Suspect]
     Route: 048
     Dates: start: 2005
  2. SELOZOK [Suspect]
     Route: 048
     Dates: start: 2005
  3. VASTAREL [Concomitant]
     Route: 048
     Dates: start: 2005
  4. VASCLIN [Concomitant]
     Route: 048
     Dates: start: 2005, end: 201303

REACTIONS (6)
  - Coronary artery occlusion [Recovered/Resolved]
  - Malaise [Recovered/Resolved]
  - Dyspnoea [Recovered/Resolved]
  - Chest pain [Recovered/Resolved]
  - Dizziness [Recovered/Resolved]
  - Off label use [Not Recovered/Not Resolved]
